FAERS Safety Report 9878314 (Version 1)
Quarter: 2014Q1

REPORT INFORMATION
  Report Type: Spontaneous
  Country: CA (occurrence: CA)
  Receive Date: 20140206
  Receipt Date: 20140206
  Transmission Date: 20141002
  Serious: Yes (Other)
  Sender: FDA-Public Use
  Company Number: PHHY2014CA014090

PATIENT
  Sex: Female

DRUGS (10)
  1. FEMARA [Suspect]
     Dosage: UNK UKN, UNK
     Dates: start: 2009, end: 2012
  2. TAMOXIFEN [Suspect]
     Dosage: UNK UKN, UNK
     Dates: start: 2008
  3. AROMASIN [Suspect]
     Dosage: UNK UKN, UNK
     Dates: start: 2012, end: 2013
  4. FASLODEX [Suspect]
     Dosage: UNK UKN, UNK
     Dates: start: 2013
  5. TAXOL [Suspect]
     Dosage: UNK UKN, UNK
     Dates: start: 2012, end: 2013
  6. EFFEXOR [Concomitant]
  7. LYRICA [Concomitant]
  8. IMOVANE [Concomitant]
     Dosage: UNK UKN, PRN
  9. OMEGA 3 [Concomitant]
  10. CALTRATE [Concomitant]

REACTIONS (2)
  - Neuropathy peripheral [Unknown]
  - Disease progression [Unknown]
